FAERS Safety Report 20566984 (Version 1)
Quarter: 2022Q1

REPORT INFORMATION
  Report Type: Spontaneous
  Country: US (occurrence: US)
  Receive Date: 20220308
  Receipt Date: 20220308
  Transmission Date: 20220423
  Serious: No
  Sender: FDA-Public Use
  Company Number: US-BAUSCH-BL-2022-005758

PATIENT
  Sex: Female

DRUGS (1)
  1. TIMOLOL MALEATE [Suspect]
     Active Substance: TIMOLOL MALEATE
     Indication: Glaucoma
     Route: 047
     Dates: start: 2019, end: 202202

REACTIONS (6)
  - Enlarged uvula [Recovering/Resolving]
  - Dry throat [Not Recovered/Not Resolved]
  - Pharyngitis bacterial [Unknown]
  - Tinnitus [Not Recovered/Not Resolved]
  - Vertigo [Unknown]
  - Insomnia [Not Recovered/Not Resolved]

NARRATIVE: CASE EVENT DATE: 20220201
